FAERS Safety Report 6033018-6 (Version None)
Quarter: 2009Q1

REPORT INFORMATION
  Report Type: 
  Country: None (occurrence: None)
  Receive Date: 20090109
  Receipt Date: 20081229
  Transmission Date: 20090719
  Serious: Yes (Hospitalization)
  Sender: FDA-Public Use
  Company Number: GB-PFIZER INC-2006071469

PATIENT

DRUGS (4)
  1. SUNITINIB MALATE [Suspect]
     Indication: RENAL CELL CARCINOMA
     Dosage: 50 MG, 1X/DAY
     Route: 048
     Dates: start: 20060511
  2. TRANDOLAPRIL [Concomitant]
     Route: 048
     Dates: start: 20050101
  3. ALBUTEROL [Concomitant]
     Route: 055
     Dates: start: 20030101
  4. ACETAMINOPHEN [Concomitant]
     Route: 048
     Dates: start: 20030101

REACTIONS (5)
  - CONFUSIONAL STATE [None]
  - DEHYDRATION [None]
  - FALL [None]
  - PYREXIA [None]
  - SYNCOPE [None]
